FAERS Safety Report 8176541-0 (Version None)
Quarter: 2012Q1

REPORT INFORMATION
  Report Type: 
  Country: None (occurrence: None)
  Receive Date: 20120301
  Receipt Date: 20120221
  Transmission Date: 20120608
  Serious: Yes (Other)
  Sender: FDA-Public Use
  Company Number: JP-JNJFOC-20120211919

PATIENT
  Age: 8 Decade
  Sex: Male

DRUGS (3)
  1. MICONAZOLE [Suspect]
     Route: 049
  2. MICONAZOLE [Suspect]
     Indication: ORAL CANDIDIASIS
     Dosage: FOR 10 DAYS
     Route: 049
  3. WARFARIN SODIUM [Interacting]
     Indication: ATRIAL FIBRILLATION
     Route: 048

REACTIONS (3)
  - RETROPERITONEAL HAEMORRHAGE [None]
  - INTERNATIONAL NORMALISED RATIO INCREASED [None]
  - DRUG INTERACTION [None]
